FAERS Safety Report 8552681-9 (Version None)
Quarter: 2012Q3

REPORT INFORMATION
  Report Type: 
  Country: None (occurrence: None)
  Receive Date: 20120731
  Receipt Date: 20120720
  Transmission Date: 20120928
  Serious: Yes (Other)
  Sender: FDA-Public Use
  Company Number: AT-COVIDIEN/TYCO HEALTHCARE/MALLINCKRODT-T201202874

PATIENT
  Age: 21 Year
  Sex: Female
  Weight: 65 kg

DRUGS (9)
  1. ROCURONIUM BROMIDE [Concomitant]
     Indication: ANAESTHESIA
     Dosage: 25 MG, UNK
  2. MIDAZOLAM [Suspect]
     Indication: ANAESTHESIA
     Dosage: 7.5 MG, UNK
     Route: 048
  3. DICLOFENAC [Concomitant]
     Indication: ANAESTHESIA
     Dosage: 75 MG, UNK
  4. FENTANYL CITRATE [Suspect]
     Indication: ANAESTHESIA
     Dosage: 0.15 MG, UNK
  5. NITROUS OXIDE W/ OXYGEN [Concomitant]
     Dosage: 66%/33%
  6. GLYCOPYRROLATE                     /00196202/ [Concomitant]
     Indication: ANAESTHESIA
     Dosage: 0.6 MG, UNK
  7. NEOSTIGMINE METHYLSULFATE [Suspect]
     Indication: ANAESTHESIA
     Dosage: 3.2 MG, UNK
  8. PROPOFOL [Suspect]
     Indication: ANAESTHESIA
     Dosage: 200 MG BOLUS + 400 MG/H
     Route: 042
  9. RANITIDINE [Suspect]
     Indication: ANAESTHESIA
     Dosage: 50 MG, UNK

REACTIONS (2)
  - DRUG INTERACTION [None]
  - ATRIOVENTRICULAR DISSOCIATION [None]
